FAERS Safety Report 6440386-X (Version None)
Quarter: 2009Q4

REPORT INFORMATION
  Report Type: 
  Country: None (occurrence: None)
  Receive Date: 20091113
  Receipt Date: 20091106
  Transmission Date: 20100525
  Serious: Yes (Other)
  Sender: FDA-Public Use
  Company Number: PHHY2009BR49207

PATIENT
  Sex: Female
  Weight: 42 kg

DRUGS (2)
  1. EXELON [Suspect]
     Dosage: 9MG/5CM2, 1 PATCH PER DAY
     Route: 062
     Dates: start: 20090801
  2. EXELON [Suspect]
     Dosage: 18MG/10CM2
     Route: 062
     Dates: start: 20090901

REACTIONS (4)
  - APPLICATION SITE ERYTHEMA [None]
  - APPLICATION SITE PRURITUS [None]
  - APPLICATION SITE SWELLING [None]
  - SKIN EXFOLIATION [None]
